FAERS Safety Report 18051903 (Version 4)
Quarter: 2021Q3

REPORT INFORMATION
  Report Type: Report from Study
  Country: US (occurrence: US)
  Receive Date: 20200721
  Receipt Date: 20210725
  Transmission Date: 20211014
  Serious: Yes (Other)
  Sender: FDA-Public Use
  Company Number: NVSC2020US203273

PATIENT
  Sex: Female

DRUGS (1)
  1. MAYZENT [Suspect]
     Active Substance: SIPONIMOD
     Indication: MULTIPLE SCLEROSIS
     Dosage: 2 MG, QD
     Route: 048

REACTIONS (7)
  - Tibia fracture [Unknown]
  - Fibula fracture [Unknown]
  - Pain [Unknown]
  - Lower limb fracture [Unknown]
  - Multiple sclerosis relapse [Unknown]
  - Nervousness [Unknown]
  - Ocular discomfort [Unknown]
